FAERS Safety Report 25715273 (Version 1)
Quarter: 2025Q3

REPORT INFORMATION
  Report Type: Spontaneous
  Country: NZ (occurrence: NZ)
  Receive Date: 20250822
  Receipt Date: 20250822
  Transmission Date: 20251020
  Serious: Yes (Other)
  Sender: Haleon PLC
  Company Number: NZ-002147023-NVSC2025NZ131520

PATIENT
  Age: 44 Year
  Sex: Male

DRUGS (1)
  1. DICLOFENAC [Suspect]
     Active Substance: DICLOFENAC
     Indication: Product used for unknown indication

REACTIONS (5)
  - Deafness [Unknown]
  - Peripheral swelling [Unknown]
  - Fall [Unknown]
  - Eye disorder [Unknown]
  - Micturition disorder [Unknown]
